FAERS Safety Report 4445496-4 (Version None)
Quarter: 2004Q3

REPORT INFORMATION
  Report Type: 
  Country: None (occurrence: None)
  Receive Date: 20040804
  Receipt Date: 20031218
  Transmission Date: 20050211
  Serious: Yes (Other)
  Sender: FDA-Public Use
  Company Number: 10045757-NA01-1

PATIENT

DRUGS (1)
  1. STERILE WATER [Suspect]

REACTIONS (1)
  - MEDICATION ERROR [None]
